FAERS Safety Report 8911684 (Version 1)
Quarter: 2012Q4

REPORT INFORMATION
  Report Type: Spontaneous
  Country: US (occurrence: None)
  Receive Date: 20121114
  Receipt Date: 20121114
  Transmission Date: 20130627
  Serious: Yes (Hospitalization)
  Sender: FDA-Public Use
  Company Number: None

PATIENT
  Age: 39 Year
  Sex: Male
  Weight: 87.09 kg

DRUGS (5)
  1. PAZOPANIB [Suspect]
     Route: 048
     Dates: start: 20121029, end: 20121107
  2. OXYCONTIN [Concomitant]
  3. OXYCODONE [Concomitant]
  4. MIRALAX [Concomitant]
  5. COMPAZINE [Concomitant]

REACTIONS (4)
  - Nausea [None]
  - Vomiting [None]
  - Pyrexia [None]
  - Dyspepsia [None]
